FAERS Safety Report 9476808 (Version 1)
Quarter: 2013Q3

REPORT INFORMATION
  Report Type: Report from Study
  Country: US (occurrence: US)
  Receive Date: 20130826
  Receipt Date: 20130826
  Transmission Date: 20140515
  Serious: Yes (Other)
  Sender: FDA-Public Use
  Company Number: US-GLAXOSMITHKLINE-A1035778B

PATIENT
  Sex: Female

DRUGS (3)
  1. OFATUMUMAB [Suspect]
     Indication: NON-HODGKIN^S LYMPHOMA
  2. BENDAMUSTINE [Suspect]
     Indication: NON-HODGKIN^S LYMPHOMA
  3. PENTOSTATIN [Suspect]
     Indication: NON-HODGKIN^S LYMPHOMA

REACTIONS (1)
  - Lymphocyte count decreased [Recovered/Resolved]
